FAERS Safety Report 23248692 (Version 1)
Quarter: 2023Q4

REPORT INFORMATION
  Report Type: Report from Study
  Country: US (occurrence: US)
  Receive Date: 20231201
  Receipt Date: 20231201
  Transmission Date: 20240110
  Serious: No
  Sender: FDA-Public Use
  Company Number: US-ALXN-A202305722

PATIENT
  Sex: Male

DRUGS (1)
  1. ULTOMIRIS [Suspect]
     Active Substance: RAVULIZUMAB-CWVZ
     Indication: Myasthenia gravis
     Dosage: UNK
     Route: 065

REACTIONS (10)
  - Asthenopia [Unknown]
  - Muscular weakness [Not Recovered/Not Resolved]
  - Grip strength decreased [Not Recovered/Not Resolved]
  - Dyspnoea exertional [Not Recovered/Not Resolved]
  - Visual impairment [Unknown]
  - General physical health deterioration [Not Recovered/Not Resolved]
  - Sensory loss [Unknown]
  - Hyperaesthesia [Unknown]
  - Asthenia [Not Recovered/Not Resolved]
  - Fatigue [Unknown]
